FAERS Safety Report 16773278 (Version 1)
Quarter: 2019Q3

REPORT INFORMATION
  Report Type: Report from Study
  Country: JP (occurrence: JP)
  Receive Date: 20190904
  Receipt Date: 20190904
  Transmission Date: 20191005
  Serious: Yes (Hospitalization, Other)
  Sender: FDA-Public Use
  Company Number: JP-GLAXOSMITHKLINE-JP2019JPN158396

PATIENT
  Age: 6 Decade
  Sex: Female
  Weight: 46 kg

DRUGS (18)
  1. BELIMUMAB [Suspect]
     Active Substance: BELIMUMAB
     Dosage: 10 MG/KG, EVERY 4 WEEKS
     Route: 041
     Dates: start: 20181217, end: 20190616
  2. LIMETHASON INTRAVENOUS INJECTION [Concomitant]
     Dosage: 2.5 MG, 1D
     Dates: start: 20181119, end: 20181119
  3. BELIMUMAB [Suspect]
     Active Substance: BELIMUMAB
     Indication: SYSTEMIC LUPUS ERYTHEMATOSUS
     Dosage: 10 MG/KG, EVERY 2 WEEKS
     Route: 041
     Dates: start: 20180618, end: 20180618
  4. LIMETHASON INTRAVENOUS INJECTION [Concomitant]
     Dosage: 2.5 MG, 1D
     Dates: start: 20180730, end: 20180730
  5. LIMETHASON INTRAVENOUS INJECTION [Concomitant]
     Dosage: 2.5 MG, 1D
     Dates: start: 20180827, end: 20180827
  6. LIMETHASON INTRAVENOUS INJECTION [Concomitant]
     Dosage: 2.5 MG, EVERY 4 WEEKS
     Dates: start: 201812
  7. BELIMUMAB [Suspect]
     Active Substance: BELIMUMAB
     Dosage: 10 MG/KG, EVERY 4 WEEKS
     Route: 041
     Dates: start: 20180702, end: 20181119
  8. LIMETHASON INTRAVENOUS INJECTION [Concomitant]
     Indication: SYSTEMIC LUPUS ERYTHEMATOSUS
     Dosage: 2.5 MG, 1D
     Dates: start: 20180618, end: 20180618
  9. LIMETHASON INTRAVENOUS INJECTION [Concomitant]
     Dosage: 2.5 MG, 1D
     Dates: start: 20180702, end: 20180702
  10. LIMETHASON INTRAVENOUS INJECTION [Concomitant]
     Dosage: 2.5 MG, 1D
     Dates: start: 20180925, end: 20180925
  11. LIMETHASON INTRAVENOUS INJECTION [Concomitant]
     Dosage: 2.5 MG, 1D
     Dates: start: 20181018, end: 20181018
  12. CALONAL TABLET [Concomitant]
     Dosage: UNK
  13. AMLODIPINE OD TABLETS [Concomitant]
     Active Substance: AMLODIPINE BESYLATE
     Dosage: UNK
  14. BONVIVA SYRINGES FOR INTRAVENOUS INJECTION [Concomitant]
     Dosage: UNK
  15. PREDNISOLONE TABLETS [Concomitant]
     Active Substance: PREDNISOLONE
     Indication: SYSTEMIC LUPUS ERYTHEMATOSUS
     Dosage: 1 MG, 1D
     Dates: start: 20180618
  16. BUCILLAMINE TABLETS [Concomitant]
     Dosage: UNK
  17. LANSOPRAZOLE-OD TABLETS [Concomitant]
     Dosage: UNK
  18. KOLBET TABLETS [Concomitant]
     Dosage: UNK

REACTIONS (1)
  - Lymphoma [Not Recovered/Not Resolved]

NARRATIVE: CASE EVENT DATE: 20190531
